FAERS Safety Report 7049448-X (Version None)
Quarter: 2010Q4

REPORT INFORMATION
  Report Type: 
  Country: None (occurrence: None)
  Receive Date: 20101018
  Receipt Date: 20101011
  Transmission Date: 20110411
  Serious: Yes (Death, Hospitalization, Other)
  Sender: FDA-Public Use
  Company Number: IT-BAXTER-2010BH025419

PATIENT
  Age: 84 Year
  Sex: Female

DRUGS (2)
  1. CYCLOPHOSPHAMIDE [Suspect]
     Indication: BREAST CANCER
     Route: 065
  2. METHOTREXATE [Suspect]
     Indication: BREAST CANCER
     Route: 065

REACTIONS (10)
  - ASTHENIA [None]
  - BONE MARROW FAILURE [None]
  - DEATH [None]
  - DIARRHOEA [None]
  - HYPERKALAEMIA [None]
  - INTESTINAL OBSTRUCTION [None]
  - LEUKOPENIA [None]
  - LIVER FUNCTION TEST ABNORMAL [None]
  - NAUSEA [None]
  - RENAL FAILURE ACUTE [None]
